FAERS Safety Report 9712963 (Version 1)
Quarter: 2013Q4

REPORT INFORMATION
  Report Type: Spontaneous
  Country: US (occurrence: US)
  Receive Date: 20131126
  Receipt Date: 20131126
  Transmission Date: 20140711
  Serious: No
  Sender: FDA-Public Use
  Company Number: US-BRISTOL-MYERS SQUIBB COMPANY-18943373

PATIENT
  Age: 54 Year
  Sex: Female
  Weight: 104.76 kg

DRUGS (2)
  1. BYDUREON [Suspect]
     Indication: TYPE 2 DIABETES MELLITUS
     Route: 058
     Dates: start: 20130523
  2. GLUMETZA [Concomitant]

REACTIONS (1)
  - Injection site haemorrhage [Recovered/Resolved]
